FAERS Safety Report 7523011-6 (Version None)
Quarter: 2011Q2

REPORT INFORMATION
  Report Type: 
  Country: None (occurrence: None)
  Receive Date: 20110603
  Receipt Date: 20110531
  Transmission Date: 20111010
  Serious: Yes (Hospitalization)
  Sender: FDA-Public Use
  Company Number: FR-MERCK-1101FRA00106

PATIENT
  Age: 58 Year
  Sex: Female

DRUGS (7)
  1. JANUMET [Suspect]
     Indication: TYPE 2 DIABETES MELLITUS
     Route: 048
     Dates: start: 20100901
  2. METFORMIN [Concomitant]
     Indication: TYPE 2 DIABETES MELLITUS
     Route: 048
     Dates: end: 20100901
  3. DIHYDROERGOTAMINE MESYLATE [Concomitant]
     Indication: MIGRAINE
     Route: 048
  4. ACETAMINOPHEN [Concomitant]
     Route: 065
  5. ASPIRIN LYSINE [Concomitant]
     Route: 048
  6. HYDROCHLOROTHIAZIDE AND IRBESARTAN [Concomitant]
     Indication: HYPERTENSION
     Route: 048
  7. TIANEPTINE SODIUM [Concomitant]
     Indication: STRESS
     Route: 048

REACTIONS (2)
  - VASCULITIS [None]
  - OPTIC ISCHAEMIC NEUROPATHY [None]
